FAERS Safety Report 6702790-1 (Version None)
Quarter: 2010Q2

REPORT INFORMATION
  Report Type: 
  Country: None (occurrence: None)
  Receive Date: 20100429
  Receipt Date: 20100416
  Transmission Date: 20101027
  Serious: Yes (Hospitalization)
  Sender: FDA-Public Use
  Company Number: US-ELI_LILLY_AND_COMPANY-US201004005266

PATIENT
  Sex: Female

DRUGS (4)
  1. FORTEO [Suspect]
     Indication: OSTEOPOROSIS
     Dosage: 20 UG, DAILY (1/D)
     Dates: start: 20091001
  2. VITAMIN TAB [Concomitant]
  3. ADVAIR DISKUS 100/50 [Concomitant]
  4. CLOTRIMAZOLE [Concomitant]
     Indication: CANDIDIASIS
     Dosage: 10 MG, UNKNOWN

REACTIONS (3)
  - BRONCHITIS [None]
  - PNEUMONIA [None]
  - TREMOR [None]
